FAERS Safety Report 17128572 (Version 1)
Quarter: 2019Q4

REPORT INFORMATION
  Report Type: Spontaneous
  Country: US (occurrence: US)
  Receive Date: 20191206
  Receipt Date: 20191206
  Transmission Date: 20200122
  Serious: Yes (Hospitalization)
  Sender: FDA-Public Use
  Company Number: None

PATIENT
  Age: 71 Year
  Sex: Female
  Weight: 60.7 kg

DRUGS (1)
  1. DIVALPROEX EC TABLET [Suspect]
     Active Substance: DIVALPROEX SODIUM
     Indication: BEHAVIOUR DISORDER
     Route: 048
     Dates: start: 20180801, end: 20191126

REACTIONS (1)
  - Pancreatitis [None]

NARRATIVE: CASE EVENT DATE: 20191126
